FAERS Safety Report 5477573-3 (Version None)
Quarter: 2007Q3

REPORT INFORMATION
  Report Type: 
  Country: None (occurrence: None)
  Receive Date: 20070925
  Receipt Date: 20070731
  Transmission Date: 20080115
  Serious: No
  Sender: FDA-Public Use
  Company Number: 2007US001910

PATIENT
  Age: 87 Year
  Sex: Female

DRUGS (7)
  1. VESICARE [Suspect]
     Indication: URINARY TRACT DISORDER
     Dosage: 10 MG, UID/QD, ORAL
     Route: 048
     Dates: start: 20070730
  2. PHENOBARBITAL TAB [Suspect]
     Indication: CEREBROVASCULAR ACCIDENT
  3. FOSAMAX [Suspect]
     Indication: DRUG USE FOR UNKNOWN INDICATION
  4. ASPIRIN [Suspect]
     Indication: DRUG USE FOR UNKNOWN INDICATION
  5. GLUCOSAMINE(COD-LIVER OIL) [Suspect]
     Indication: DRUG USE FOR UNKNOWN INDICATION
  6. CHONDROTIN(CHONDROITIN) [Suspect]
     Indication: DRUG USE FOR UNKNOWN INDICATION
  7. CALCIUM(ASCORBIC ACID) [Suspect]
     Indication: DRUG USE FOR UNKNOWN INDICATION

REACTIONS (1)
  - DYSARTHRIA [None]
